FAERS Safety Report 12685209 (Version 1)
Quarter: 2016Q3

REPORT INFORMATION
  Report Type: Spontaneous
  Country: US (occurrence: US)
  Receive Date: 20160825
  Receipt Date: 20160825
  Transmission Date: 20161109
  Serious: No
  Sender: FDA-Public Use
  Company Number: US-DSJP-DSU-2016-114598

PATIENT
  Sex: Female
  Weight: 86.17 kg

DRUGS (3)
  1. SIMVASTATIN. [Concomitant]
     Active Substance: SIMVASTATIN
     Indication: BLOOD CHOLESTEROL INCREASED
     Dosage: UNK
     Dates: start: 2006
  2. TRIBENZOR [Suspect]
     Active Substance: AMLODIPINE BESYLATE\HYDROCHLOROTHIAZIDE\OLMESARTAN MEDOXOMIL
     Indication: HYPERTENSION
     Dosage: 40/25/10 MG, QD
     Route: 048
     Dates: start: 2014
  3. TENORMIN [Suspect]
     Active Substance: ATENOLOL
     Indication: HYPERTENSION
     Dosage: 100 MG, QD
     Route: 048

REACTIONS (3)
  - Weight increased [Not Recovered/Not Resolved]
  - Dizziness [Unknown]
  - Joint swelling [Not Recovered/Not Resolved]
